FAERS Safety Report 5357110-4 (Version None)
Quarter: 2007Q2

REPORT INFORMATION
  Report Type: 
  Country: None (occurrence: None)
  Receive Date: 20070612
  Receipt Date: 20070525
  Transmission Date: 20071010
  Serious: Yes (Death)
  Sender: FDA-Public Use
  Company Number: 13784392

PATIENT
  Age: 46 Year
  Sex: Male

DRUGS (7)
  1. CETUXIMAB [Suspect]
     Indication: COLORECTAL CANCER METASTATIC
     Dosage: 834 MILLIGRAM 1/1 WEEK, IV
     Route: 042
     Dates: start: 20060712, end: 20060712
  2. BEVACIZUMAB [Suspect]
     Indication: COLORECTAL CANCER METASTATIC
     Dosage: 455 MILLIGRAM 1/1 WEEK, IV
     Route: 042
     Dates: start: 20060712, end: 20060712
  3. FLUOROURACIL [Suspect]
     Indication: COLORECTAL CANCER METASTATIC
     Dosage: 1/1 WEEK
  4. LEUCOVORIN CALCIUM [Concomitant]
     Indication: COLORECTAL CANCER METASTATIC
     Dosage: 808  MILLIGRAM 1/1 WEEK, IV
     Route: 042
     Dates: start: 20060726, end: 20060726
  5. AVASTIN [Concomitant]
  6. FLUOROURACIL [Concomitant]
  7. OXALIPLATIN [Concomitant]

REACTIONS (7)
  - MALIGNANT NEOPLASM PROGRESSION [None]
  - METASTASES TO LIVER [None]
  - METASTASES TO LUNG [None]
  - METASTASES TO RECTUM [None]
  - PNEUMONIA [None]
  - RECTAL CANCER [None]
  - SOFT TISSUE DISORDER [None]
